FAERS Safety Report 8939313 (Version 1)
Quarter: 2012Q4

REPORT INFORMATION
  Report Type: 
  Country: US (occurrence: US)
  Receive Date: 20121203
  Receipt Date: 20121203
  Transmission Date: 20130627
  Serious: No
  Sender: FDA-Public Use
  Company Number: US-PFIZER INC-2012302062

PATIENT
  Age: 70 Year
  Sex: Female
  Weight: 89.8 kg

DRUGS (8)
  1. ZOLOFT [Suspect]
     Indication: DEPRESSION
     Dosage: UNK, daily
  2. ZOLOFT [Suspect]
     Indication: ANXIETY
  3. CYMBALTA [Suspect]
     Indication: DEPRESSION
     Dosage: 30 mg, daily
     Dates: start: 201208, end: 2012
  4. CYMBALTA [Suspect]
     Indication: ANXIETY
  5. CYMBALTA [Suspect]
     Indication: STRESS
  6. CELEXA [Concomitant]
     Indication: DEPRESSION
     Dosage: UNK
  7. PRISTIQ [Concomitant]
     Indication: DEPRESSION
     Dosage: 50 mg, daily
  8. PRISTIQ [Concomitant]
     Indication: ANXIETY

REACTIONS (2)
  - Drug ineffective [Unknown]
  - Malaise [Unknown]
